FAERS Safety Report 4813351-3 (Version None)
Quarter: 2005Q4

REPORT INFORMATION
  Report Type: 
  Country: None (occurrence: None)
  Receive Date: 20051028
  Receipt Date: 20050506
  Transmission Date: 20060501
  Serious: Yes (Other)
  Sender: FDA-Public Use
  Company Number: US-GLAXOSMITHKLINE-A0557558A

PATIENT
  Age: 52 Year
  Sex: Female
  Weight: 87.3 kg

DRUGS (9)
  1. ADVAIR DISKUS 100/50 [Suspect]
     Indication: ASTHMA
     Dosage: 1PUFF TWICE PER DAY
     Route: 055
     Dates: end: 20050201
  2. RHINOCORT [Concomitant]
     Indication: ASTHMA
     Dosage: 1PUFF PER DAY
     Route: 045
  3. ACYCLOVIR [Concomitant]
     Dosage: 400MG TWICE PER DAY
  4. KALETRA [Concomitant]
  5. ZERIT [Concomitant]
     Dosage: 30MG TWICE PER DAY
  6. NAPROXEN [Concomitant]
     Dosage: 500MG PER DAY
  7. PRAVACHOL [Concomitant]
     Dosage: 40MG PER DAY
  8. NORETHINDRONE [Concomitant]
     Dosage: 5MG PER DAY
  9. CORATADINA [Concomitant]
     Dosage: 10MG PER DAY

REACTIONS (2)
  - ADRENAL SUPPRESSION [None]
  - CUSHING'S SYNDROME [None]
